FAERS Safety Report 18363437 (Version 1)
Quarter: 2020Q4

REPORT INFORMATION
  Report Type: Spontaneous
  Country: US (occurrence: US)
  Receive Date: 20201009
  Receipt Date: 20201009
  Transmission Date: 20210114
  Serious: No
  Sender: FDA-Public Use
  Company Number: US-ELI_LILLY_AND_COMPANY-US202009005014

PATIENT
  Sex: Male

DRUGS (13)
  1. INSULIN LISPRO LILLY (MIRIOPEN) (KWIKPEN) [Suspect]
     Active Substance: INSULIN LISPRO
     Dosage: 8 U, DAILY
     Route: 058
  2. INSULIN LISPRO LILLY (MIRIOPEN) (KWIKPEN) [Suspect]
     Active Substance: INSULIN LISPRO
     Dosage: 8 U, DAILY
     Route: 058
  3. INSULIN LISPRO LILLY (MIRIOPEN) (KWIKPEN) [Suspect]
     Active Substance: INSULIN LISPRO
     Dosage: 8 U, DAILY
     Route: 058
     Dates: start: 2019
  4. INSULIN LISPRO LILLY (MIRIOPEN) (KWIKPEN) [Suspect]
     Active Substance: INSULIN LISPRO
     Dosage: 15 U, DAILY
     Route: 058
  5. INSULIN LISPRO LILLY (MIRIOPEN) (KWIKPEN) [Suspect]
     Active Substance: INSULIN LISPRO
     Dosage: 8 U, DAILY
     Route: 058
     Dates: start: 2019
  6. INSULIN LISPRO LILLY (MIRIOPEN) (KWIKPEN) [Suspect]
     Active Substance: INSULIN LISPRO
     Dosage: 15 U, DAILY
     Route: 058
  7. INSULIN LISPRO LILLY (MIRIOPEN) (KWIKPEN) [Suspect]
     Active Substance: INSULIN LISPRO
     Dosage: 15 U, DAILY
     Route: 058
     Dates: start: 2019
  8. INSULIN LISPRO LILLY (MIRIOPEN) (KWIKPEN) [Suspect]
     Active Substance: INSULIN LISPRO
     Dosage: 13 U, EACH MORNING
     Route: 058
  9. TOUJEO [Concomitant]
     Active Substance: INSULIN GLARGINE
     Indication: TYPE 2 DIABETES MELLITUS
     Dosage: 18 U, DAILY (BEFORE BEDTIME)
     Dates: start: 201912
  10. INSULIN LISPRO LILLY (MIRIOPEN) (KWIKPEN) [Suspect]
     Active Substance: INSULIN LISPRO
     Dosage: 15 U, DAILY
     Route: 058
     Dates: start: 2019
  11. INSULIN LISPRO LILLY (MIRIOPEN) (KWIKPEN) [Suspect]
     Active Substance: INSULIN LISPRO
     Indication: TYPE 2 DIABETES MELLITUS
     Dosage: 13 U, EACH MORNING
     Route: 058
     Dates: start: 2019
  12. INSULIN LISPRO LILLY (MIRIOPEN) (KWIKPEN) [Suspect]
     Active Substance: INSULIN LISPRO
     Indication: TYPE 2 DIABETES MELLITUS
     Dosage: 13 U, EACH MORNING
     Route: 058
     Dates: start: 2019
  13. INSULIN LISPRO LILLY (MIRIOPEN) (KWIKPEN) [Suspect]
     Active Substance: INSULIN LISPRO
     Dosage: 13 U, EACH MORNING
     Route: 058

REACTIONS (6)
  - Urticaria [Unknown]
  - Tremor [Unknown]
  - Hypoacusis [Unknown]
  - Arthropod bite [Unknown]
  - Blood glucose decreased [Unknown]
  - Back pain [Unknown]
